FAERS Safety Report 5446636-0 (Version None)
Quarter: 2007Q3

REPORT INFORMATION
  Report Type: 
  Country: None (occurrence: None)
  Receive Date: 20070907
  Receipt Date: 20070828
  Transmission Date: 20080115
  Serious: Yes (Death, Hospitalization, Other)
  Sender: FDA-Public Use
  Company Number: CA-PFIZER INC-2007062997

PATIENT
  Age: 42 Year
  Sex: Male

DRUGS (5)
  1. SUTENT [Suspect]
     Indication: MALIGNANT MELANOMA
     Route: 048
     Dates: start: 20070701, end: 20070723
  2. DEXAMETHASONE 0.5MG TAB [Concomitant]
  3. RABEPRAZOLE SODIUM [Concomitant]
  4. DILAUDID [Concomitant]
  5. PROPRANOLOL [Concomitant]

REACTIONS (6)
  - DISEASE PROGRESSION [None]
  - MALIGNANT MELANOMA [None]
  - METASTASES TO LUNG [None]
  - NEUTROPHIL COUNT DECREASED [None]
  - PO2 DECREASED [None]
  - PYREXIA [None]
